FAERS Safety Report 7759922-6 (Version None)
Quarter: 2011Q3

REPORT INFORMATION
  Report Type: 
  Country: None (occurrence: None)
  Receive Date: 20110919
  Receipt Date: 20100917
  Transmission Date: 20111222
  Serious: No
  Sender: FDA-Public Use
  Company Number: US-BAYER-201036870NA

PATIENT
  Sex: Female

DRUGS (1)
  1. MIRENA [Suspect]
     Indication: CONTRACEPTION
     Dosage: 20 ?G, CONT
     Route: 015
     Dates: start: 20100301

REACTIONS (6)
  - INSOMNIA [None]
  - ALOPECIA [None]
  - LOSS OF LIBIDO [None]
  - RASH [None]
  - MOOD SWINGS [None]
  - WEIGHT INCREASED [None]
